FAERS Safety Report 9730409 (Version 1)
Quarter: 2013Q4

REPORT INFORMATION
  Report Type: Spontaneous
  Country: SG (occurrence: SG)
  Receive Date: 20131202
  Receipt Date: 20131202
  Transmission Date: 20140711
  Serious: Yes (Other)
  Sender: FDA-Public Use
  Company Number: SG-PFIZER INC-2013340920

PATIENT
  Age: 57 Year
  Sex: Male

DRUGS (8)
  1. ATROPINE SULFATE [Suspect]
     Indication: GENERAL ANAESTHESIA
     Dosage: 0.3 MG, UNK
     Route: 042
  2. PROPOFOL [Concomitant]
     Indication: ANAESTHESIA
     Dosage: UNK
  3. LIDOCAINE [Concomitant]
     Indication: ANAESTHESIA
     Dosage: 20 MG, UNK
  4. ATRACURIUM [Concomitant]
     Indication: ANAESTHESIA
     Dosage: UNK
  5. ISOFLURANE [Concomitant]
     Dosage: UNK
  6. NITROUS OXIDE [Concomitant]
     Dosage: UNK
  7. FENTANYL [Concomitant]
     Dosage: 25 UG, UNK
  8. EPHEDRINE [Concomitant]
     Indication: BLOOD PRESSURE SYSTOLIC
     Dosage: UNK

REACTIONS (1)
  - Atrioventricular block second degree [Unknown]
